FAERS Safety Report 6566470-8 (Version None)
Quarter: 2010Q1

REPORT INFORMATION
  Report Type: 
  Country: None (occurrence: None)
  Receive Date: 20100127
  Receipt Date: 20100119
  Transmission Date: 20100710
  Serious: Yes (Death, Other)
  Sender: FDA-Public Use
  Company Number: CLOF-1000838

PATIENT
  Sex: Male

DRUGS (2)
  1. CLOLAR [Suspect]
     Indication: DRUG USE FOR UNKNOWN INDICATION
     Dates: start: 20090101
  2. BUSULFAN (BUSULFAN) [Suspect]
     Indication: DRUG USE FOR UNKNOWN INDICATION
     Dates: start: 20090101

REACTIONS (3)
  - CHRONIC GRAFT VERSUS HOST DISEASE [None]
  - MALAISE [None]
  - UNRESPONSIVE TO STIMULI [None]
